FAERS Safety Report 11855801 (Version 5)
Quarter: 2016Q1

REPORT INFORMATION
  Report Type: Spontaneous
  Country: US (occurrence: US)
  Receive Date: 20151221
  Receipt Date: 20160127
  Transmission Date: 20160526
  Serious: Yes (Hospitalization, Other)
  Sender: FDA-Public Use
  Company Number: US-GLAXOSMITHKLINE-US2015178957

PATIENT
  Age: 62 Year
  Sex: Female

DRUGS (2)
  1. REQUIP [Suspect]
     Active Substance: ROPINIROLE HYDROCHLORIDE
     Indication: RESTLESS LEGS SYNDROME
     Route: 048
  2. ROPINIROLE HYDROCHLORIDE. [Suspect]
     Active Substance: ROPINIROLE HYDROCHLORIDE
     Indication: RESTLESS LEGS SYNDROME

REACTIONS (8)
  - Therapeutic response unexpected [Unknown]
  - Drug ineffective [Recovered/Resolved]
  - Drug dispensing error [Unknown]
  - Hysterectomy [Recovering/Resolving]
  - Uterine haemorrhage [Recovered/Resolved]
  - Product substitution issue [Unknown]
  - Emotional distress [Unknown]
  - Uterine cancer [Unknown]

NARRATIVE: CASE EVENT DATE: 201511
